FAERS Safety Report 7860577-0 (Version None)
Quarter: 2011Q4

REPORT INFORMATION
  Report Type: 
  Country: None (occurrence: None)
  Receive Date: 20111027
  Receipt Date: 20111018
  Transmission Date: 20120403
  Serious: Yes (Hospitalization, Other)
  Sender: FDA-Public Use
  Company Number: FR-JNJFOC-20111009804

PATIENT
  Sex: Male

DRUGS (5)
  1. FENTANYL CITRATE [Suspect]
     Indication: PRODUCT USED FOR UNKNOWN INDICATION
     Dosage: REPORTED AS '600 GAMMA'
     Route: 040
     Dates: start: 20110825, end: 20110825
  2. ETOMIDATE [Suspect]
     Indication: PRODUCT USED FOR UNKNOWN INDICATION
     Route: 042
     Dates: start: 20110825, end: 20110825
  3. CELOCURINE [Suspect]
     Indication: PRODUCT USED FOR UNKNOWN INDICATION
     Route: 042
     Dates: start: 20110825, end: 20110825
  4. FENTANYL CITRATE [Suspect]
     Dosage: REPOTED AS 200 ^GAMMA PER HOUR^
     Route: 040
  5. PENTOBARBITAL SODIUM [Interacting]
     Indication: SUICIDE ATTEMPT
     Dosage: 175 CC
     Route: 042
     Dates: start: 20110825, end: 20110825

REACTIONS (6)
  - DRUG INEFFECTIVE [None]
  - TACHYCARDIA [None]
  - RESPIRATORY RATE INCREASED [None]
  - RESPIRATORY FAILURE [None]
  - DRUG INTERACTION [None]
  - BLOOD PRESSURE DECREASED [None]
